APPROVED DRUG PRODUCT: NATURETIN-10
Active Ingredient: BENDROFLUMETHIAZIDE
Strength: 10MG
Dosage Form/Route: TABLET;ORAL
Application: N012164 | Product #003
Applicant: APOTHECON INC DIV BRISTOL MYERS SQUIBB
Approved: Approved Prior to Jan 1, 1982 | RLD: No | RS: No | Type: DISCN